FAERS Safety Report 8859515 (Version 1)
Quarter: 2012Q4

REPORT INFORMATION
  Report Type: 
  Country: US (occurrence: US)
  Receive Date: 20121024
  Receipt Date: 20121024
  Transmission Date: 20130627
  Serious: Yes (Hospitalization, Other)
  Sender: FDA-Public Use
  Company Number: US-ELI_LILLY_AND_COMPANY-US201210005135

PATIENT
  Age: 56 Year
  Sex: Male

DRUGS (6)
  1. CYMBALTA [Suspect]
     Indication: FIBROMYALGIA
     Dosage: 60 mg, qd
  2. LYRICA [Concomitant]
  3. CELEBREX [Concomitant]
  4. OXYCONTIN [Concomitant]
     Dosage: UNK
  5. HYDROCODONE [Concomitant]
  6. MORPHINE [Concomitant]

REACTIONS (4)
  - Hip arthroplasty [Recovered/Resolved]
  - Drug ineffective [Unknown]
  - Feeling abnormal [Unknown]
  - Memory impairment [Unknown]
